FAERS Safety Report 4756326-5 (Version None)
Quarter: 2005Q3

REPORT INFORMATION
  Report Type: 
  Country: None (occurrence: None)
  Receive Date: 20050830
  Receipt Date: 20050601
  Transmission Date: 20060218
  Serious: No
  Sender: FDA-Public Use
  Company Number: US-GLAXOSMITHKLINE-A0560737A

PATIENT
  Sex: Female

DRUGS (5)
  1. WELLBUTRIN XL [Suspect]
     Indication: DEPRESSION
     Dosage: 300MG PER DAY
     Route: 048
  2. EFFEXOR [Concomitant]
  3. LIPITOR [Concomitant]
  4. VITAMINS [Concomitant]
  5. NEXIUM [Concomitant]

REACTIONS (5)
  - ABNORMAL DREAMS [None]
  - DEPRESSED MOOD [None]
  - DIZZINESS [None]
  - PYREXIA [None]
  - RESPIRATORY TRACT INFECTION VIRAL [None]
